FAERS Safety Report 7636725-4 (Version None)
Quarter: 2011Q3

REPORT INFORMATION
  Report Type: 
  Country: None (occurrence: None)
  Receive Date: 20110722
  Receipt Date: 20110722
  Transmission Date: 20111222
  Serious: Yes (Other)
  Sender: FDA-Public Use
  Company Number: None

PATIENT
  Sex: Male

DRUGS (1)
  1. DIVALPROEX SODIUM [Suspect]
     Dosage: 1000 MG -}2500 MG QD ORAL
     Route: 048
     Dates: start: 20101201, end: 20110616

REACTIONS (2)
  - DRUG LEVEL DECREASED [None]
  - PRODUCT COUNTERFEIT [None]
